FAERS Safety Report 15356133 (Version 1)
Quarter: 2018Q3

REPORT INFORMATION
  Report Type: Spontaneous
  Country: US (occurrence: US)
  Receive Date: 20180906
  Receipt Date: 20180906
  Transmission Date: 20181010
  Serious: No
  Sender: FDA-Public Use
  Company Number: US-PFIZER INC-2018337902

PATIENT
  Age: 73 Year
  Sex: Female

DRUGS (11)
  1. PREMARIN [Concomitant]
     Active Substance: ESTROGENS, CONJUGATED
     Dosage: 0.625 MG, DAILY (TAKE ONE TABLET BY MOUTH EVERY DAY)
     Route: 048
  2. NEURONTIN [Suspect]
     Active Substance: GABAPENTIN
     Indication: ABDOMINAL PAIN LOWER
  3. NEURONTIN [Suspect]
     Active Substance: GABAPENTIN
     Indication: SCIATICA
  4. NEURONTIN [Suspect]
     Active Substance: GABAPENTIN
     Indication: PAIN
     Dosage: UNK, 4X/DAY(TAKE ONE TO TWO TABLETS BY MOUTH FOUR TIMES A DAY)
     Route: 048
  5. NEURONTIN [Suspect]
     Active Substance: GABAPENTIN
     Indication: SCIATICA
  6. NEURONTIN [Suspect]
     Active Substance: GABAPENTIN
     Indication: MONONEUROPATHY
  7. NEURONTIN [Suspect]
     Active Substance: GABAPENTIN
     Indication: BACK PAIN
  8. NEURONTIN [Suspect]
     Active Substance: GABAPENTIN
     Indication: MONONEUROPATHY
  9. NEURONTIN [Suspect]
     Active Substance: GABAPENTIN
     Indication: PAIN
     Dosage: UNK, 4X/DAY (TAKE ONE TO TWO CAPSULES BY MOUTH FOUR TIMES A DAY)
     Route: 048
  10. NEURONTIN [Suspect]
     Active Substance: GABAPENTIN
     Indication: BACK PAIN
  11. NEURONTIN [Suspect]
     Active Substance: GABAPENTIN
     Indication: ABDOMINAL PAIN LOWER

REACTIONS (4)
  - Constipation [Unknown]
  - Sedation [Unknown]
  - Drug effective for unapproved indication [Unknown]
  - Overdose [Unknown]
